FAERS Safety Report 9349257 (Version 2)
Quarter: 2013Q2

REPORT INFORMATION
  Report Type: Spontaneous
  Country: US (occurrence: US)
  Receive Date: 20130614
  Receipt Date: 20130626
  Transmission Date: 20140414
  Serious: Yes (Hospitalization)
  Sender: FDA-Public Use
  Company Number: US-BRISTOL-MYERS SQUIBB COMPANY-19017201

PATIENT
  Age: 40 Year
  Sex: Female

DRUGS (4)
  1. ABILIFY INJECTION [Suspect]
     Indication: SCHIZOPHRENIA
     Dosage: ABILIFY MAINTENE; INJECTION, IM (DEPOT)?31MAY13 RECEIVED 2ND INJECTION
     Route: 030
     Dates: start: 20130430
  2. ABILIFY [Suspect]
     Dosage: 31MAY2013?APR2013-31MAY2013
     Route: 048
     Dates: start: 20130527
  3. COGENTIN [Concomitant]
  4. TRAZODONE HCL [Concomitant]

REACTIONS (1)
  - Schizophrenia, paranoid type [Unknown]
